FAERS Safety Report 9260102 (Version 2)
Quarter: 2013Q3

REPORT INFORMATION
  Report Type: Spontaneous
  Country: US (occurrence: US)
  Receive Date: 20130429
  Receipt Date: 20130703
  Transmission Date: 20140515
  Serious: Yes (Hospitalization)
  Sender: FDA-Public Use
  Company Number: US-JNJFOC-20130412282

PATIENT
  Age: 28 Year
  Sex: Female
  Weight: 76.43 kg

DRUGS (8)
  1. TYLENOL [Suspect]
     Indication: CHILLS
     Dosage: 325MG
     Route: 048
     Dates: start: 20130203, end: 20130205
  2. TYLENOL [Suspect]
     Indication: DYSPEPSIA
     Dosage: 325MG
     Route: 048
     Dates: start: 20130203, end: 20130205
  3. TYLENOL [Suspect]
     Indication: MYALGIA
     Dosage: 325MG
     Route: 048
     Dates: start: 20130203, end: 20130205
  4. TYLENOL [Suspect]
     Indication: FATIGUE
     Dosage: 325MG
     Route: 048
     Dates: start: 20130203, end: 20130205
  5. TYLENOL [Suspect]
     Indication: PYREXIA
     Dosage: 325MG
     Route: 048
     Dates: start: 20130203, end: 20130205
  6. MYLOTARG [Suspect]
     Indication: ACUTE PROMYELOCYTIC LEUKAEMIA
     Route: 042
     Dates: start: 20120504
  7. MYLOTARG [Suspect]
     Indication: ACUTE PROMYELOCYTIC LEUKAEMIA
     Route: 042
     Dates: start: 20130128, end: 20130128
  8. PEGFILGRASTIM [Suspect]
     Indication: FEBRILE NEUTROPENIA
     Route: 030
     Dates: start: 20130129, end: 20130129

REACTIONS (3)
  - Febrile neutropenia [Recovering/Resolving]
  - Neutrophil count decreased [Recovering/Resolving]
  - White blood cell count decreased [Recovering/Resolving]
